FAERS Safety Report 6866733-2 (Version None)
Quarter: 2010Q3

REPORT INFORMATION
  Report Type: 
  Country: None (occurrence: None)
  Receive Date: 20100722
  Receipt Date: 20100708
  Transmission Date: 20110219
  Serious: Yes (Hospitalization, Other)
  Sender: FDA-Public Use
  Company Number: PHEH2009US01039

PATIENT
  Sex: Male

DRUGS (25)
  1. ZOMETA [Suspect]
     Indication: PROPHYLAXIS
     Dosage: 1 MG, QMO
     Dates: start: 20030515, end: 20070101
  2. RADIATION THERAPY [Concomitant]
  3. LUPRON [Concomitant]
     Dosage: UNK
  4. PERCOCET [Concomitant]
  5. NOVANTRONE [Concomitant]
  6. TAXOTERE [Concomitant]
     Dosage: 20 MG, UNK
  7. ARANESP [Concomitant]
     Dosage: 5 MCG, UNK
  8. CASODEX [Concomitant]
  9. ROXICET [Concomitant]
  10. VALTREX [Concomitant]
     Dosage: 1 GM CAPLET
  11. OXYCODONE AND ASPIRIN [Concomitant]
     Dosage: UNK
  12. KETOCONOZOLE [Concomitant]
     Dosage: UNK
  13. LEXAPRO [Concomitant]
     Dosage: 10 MG TABLETS
  14. PREDNISONE TAB [Concomitant]
     Dosage: 4 MG TABLETS
  15. DEXAMETHASONE [Concomitant]
     Dosage: 4 MG
  16. LIDOCAINE HCL VISCOUS [Concomitant]
     Dosage: 2%
  17. PROTONIX [Concomitant]
     Dosage: UNK
  18. NEULASTA [Concomitant]
     Dosage: 6 MG, UNK
  19. ANZEMET [Concomitant]
     Dosage: 20 MG, UNK
  20. CARBOPLATIN [Concomitant]
     Dosage: 50 MG, UNK
  21. NOVANTRONE [Concomitant]
     Dosage: 5 MG, UNK
  22. DILAUDID [Concomitant]
     Dosage: UNK
  23. OXYCONTIN [Concomitant]
     Dosage: UNK
  24. AUGMENTIN '125' [Concomitant]
     Dosage: 875 / BID
  25. PERIDEX [Concomitant]
     Dosage: UNK

REACTIONS (46)
  - ABSCESS JAW [None]
  - ANAEMIA [None]
  - ANHEDONIA [None]
  - ANXIETY [None]
  - ARTERIOSCLEROSIS [None]
  - ARTHRALGIA [None]
  - ASTHENIA [None]
  - BACK PAIN [None]
  - BLOOD PRESSURE DECREASED [None]
  - BONE DISORDER [None]
  - BONE PAIN [None]
  - BONE SWELLING [None]
  - BRONCHITIS [None]
  - CALCULUS URETERIC [None]
  - CARDIAC VALVE DISEASE [None]
  - CELLULITIS [None]
  - CHILLS [None]
  - DACRYOSTENOSIS ACQUIRED [None]
  - DEPRESSION [None]
  - FATIGUE [None]
  - GENERAL PHYSICAL HEALTH DETERIORATION [None]
  - GLOSSODYNIA [None]
  - HAEMATURIA [None]
  - HIATUS HERNIA [None]
  - HYPOAESTHESIA ORAL [None]
  - HYPOPHAGIA [None]
  - INTERVERTEBRAL DISC PROTRUSION [None]
  - LUDWIG ANGINA [None]
  - MALIGNANT NEOPLASM PROGRESSION [None]
  - METASTASES TO BONE [None]
  - NAUSEA [None]
  - NEPHROLITHIASIS [None]
  - OSTEOMYELITIS [None]
  - OSTEONECROSIS OF JAW [None]
  - PAIN [None]
  - PAIN IN JAW [None]
  - PYELOCALIECTASIS [None]
  - PYREXIA [None]
  - SEPSIS [None]
  - SWOLLEN TEAR DUCT [None]
  - SWOLLEN TONGUE [None]
  - TRISMUS [None]
  - URETERAL STENT INSERTION [None]
  - URETERIC OBSTRUCTION [None]
  - VASCULAR CALCIFICATION [None]
  - VERTEBRAL FORAMINAL STENOSIS [None]
